FAERS Safety Report 9741694 (Version 2)
Quarter: 2013Q4

REPORT INFORMATION
  Report Type: Report from Study
  Country: US (occurrence: US)
  Receive Date: 20131210
  Receipt Date: 20131210
  Transmission Date: 20140711
  Serious: Yes (Death, Life-Threatening, Hospitalization)
  Sender: FDA-Public Use
  Company Number: US-ALEXION PHARMACEUTICALS INC.-A201202623

PATIENT
  Age: 68 Year
  Sex: Male
  Weight: 68.2 kg

DRUGS (31)
  1. SOLIRIS [Suspect]
     Indication: HAEMOLYTIC URAEMIC SYNDROME
     Dosage: 900 MG, QW
     Route: 042
     Dates: start: 20111103, end: 201112
  2. SOLIRIS [Suspect]
     Dosage: 1200 MG, Q2W
     Route: 042
     Dates: start: 2011, end: 201206
  3. SOLIRIS [Suspect]
     Dosage: 1200 MG, Q3W
     Route: 042
     Dates: start: 201206, end: 201207
  4. SOLIRIS [Suspect]
     Dosage: 1200 MG, Q 4 WEEKS
     Route: 042
     Dates: start: 201207, end: 201208
  5. SOLIRIS [Suspect]
     Dosage: 1200 MG Q6W
     Route: 042
     Dates: start: 201208, end: 20121003
  6. LEUPROLIDE ACETATE [Concomitant]
     Dosage: UNK
     Dates: end: 20120711
  7. CHEMOTHERAPEUTICS NOS [Concomitant]
     Dosage: UNK
     Dates: end: 201204
  8. OXYCODONE [Concomitant]
     Dosage: 6 MG,  Q 4-6 H PRN
     Route: 048
  9. CELEXA [Concomitant]
     Dosage: 20 MG, QD
     Route: 048
  10. METHYLPHENIDATE [Concomitant]
     Dosage: 1 TABLET, QD
     Route: 048
     Dates: start: 20030101
  11. PREVACID [Concomitant]
     Dosage: 15 MG, QD
     Route: 048
  12. LISINOPRIL [Concomitant]
     Dosage: 20 MG, QD
     Route: 048
  13. MELATONIN [Concomitant]
     Dosage: UNK, QD
  14. NIFEDIPINE [Concomitant]
     Dosage: UNK, QD
     Route: 048
  15. CARVEDILOL [Concomitant]
     Dosage: 25 MG, BID
     Route: 048
  16. MIRTAZAPINE [Concomitant]
     Dosage: UNK, QD
     Route: 048
  17. ZETIA [Concomitant]
     Dosage: 10 MG, QD
     Route: 048
  18. METOCLOPRAMIDE [Concomitant]
     Dosage: UNK
  19. CALCIUM + VITAMIN D [Concomitant]
     Dosage: UNK, BID
     Route: 048
     Dates: start: 20090101
  20. LUPRON DEPOT [Concomitant]
     Dosage: 22.5 MG Q12 WEEKS
     Route: 030
  21. SINGULAIR [Concomitant]
     Dosage: 10 MG, QD
     Route: 048
     Dates: start: 20010101
  22. FLEXERIL [Concomitant]
     Dosage: UNK
  23. PROTONIX [Concomitant]
     Dosage: UNK
  24. HALDOL [Concomitant]
     Dosage: UNK
  25. METHADONE [Concomitant]
     Dosage: UNK
     Route: 048
  26. MIRALAX [Concomitant]
     Dosage: UNK
  27. DULCOLAX [Concomitant]
     Dosage: UNK
  28. LACTULOSE [Concomitant]
     Dosage: UNK
  29. MULTIVITAMIN [Concomitant]
     Dosage: UNK
  30. VITAMIN D [Concomitant]
     Dosage: UNK
  31. DOCUSATE SODIUM [Concomitant]
     Dosage: UNK

REACTIONS (14)
  - Pain [Recovering/Resolving]
  - Death [Fatal]
  - Hospice care [Unknown]
  - Abnormal loss of weight [Unknown]
  - Fatigue [Unknown]
  - Decreased appetite [Unknown]
  - Nausea [Unknown]
  - Vomiting [Unknown]
  - Constipation [Unknown]
  - Anxiety [Unknown]
  - Depression [Unknown]
  - Muscle spasms [Recovering/Resolving]
  - Gastrooesophageal reflux disease [Recovering/Resolving]
  - Arthralgia [Unknown]
